FAERS Safety Report 8981466 (Version 2)
Quarter: 2013Q2

REPORT INFORMATION
  Report Type: Spontaneous
  Country: US (occurrence: US)
  Receive Date: 20121221
  Receipt Date: 20130617
  Transmission Date: 20140414
  Serious: Yes (Hospitalization)
  Sender: FDA-Public Use
  Company Number: US-BAYER-2012-127873

PATIENT
  Age: 32 Year
  Sex: Female
  Weight: 68.93 kg

DRUGS (9)
  1. GIANVI [Suspect]
     Indication: CONTRACEPTION
     Dosage: UNK
     Dates: start: 201009, end: 20110416
  2. GIANVI [Suspect]
     Indication: ACNE
  3. YAZ [Suspect]
     Indication: CONTRACEPTION
     Dosage: UNK
     Dates: start: 201007, end: 201009
  4. YAZ [Suspect]
     Indication: ACNE
  5. ALLEGRA [Concomitant]
     Indication: SEASONAL ALLERGY
     Dosage: UNK
     Dates: start: 2006
  6. FLONASE [Concomitant]
     Indication: SEASONAL ALLERGY
     Dosage: UNK
     Dates: start: 2001
  7. IBUPROFEN [Concomitant]
     Indication: PAIN
  8. DUAC [Concomitant]
  9. KENALOG [Concomitant]
     Dosage: UNK
     Dates: start: 20110307, end: 20110316

REACTIONS (14)
  - Muscle spasms [None]
  - Limb discomfort [None]
  - Dyspnoea exertional [None]
  - Dyspnoea [None]
  - Nasopharyngitis [None]
  - Local swelling [None]
  - Deep vein thrombosis [None]
  - Pulmonary embolism [None]
  - Pain [None]
  - Injury [None]
  - General physical health deterioration [None]
  - Anxiety [None]
  - Emotional distress [None]
  - Pain [None]
